FAERS Safety Report 9622733 (Version 2)
Quarter: 2013Q4

REPORT INFORMATION
  Report Type: Spontaneous
  Country: US (occurrence: US)
  Receive Date: 20131015
  Receipt Date: 20131015
  Transmission Date: 20140711
  Serious: No
  Sender: FDA-Public Use
  Company Number: US-PURDUE-USA-2012-0085586

PATIENT
  Age: 60 Year
  Sex: Male

DRUGS (3)
  1. BUTRANS [Suspect]
     Indication: PAIN
     Dosage: 20 MCG/HR, UNK
     Route: 062
     Dates: start: 20120209, end: 20120210
  2. BUTRANS [Suspect]
     Dosage: 10 MCG/HR, UNK
     Route: 062
  3. SIMVASTATIN [Concomitant]
     Indication: BLOOD CHOLESTEROL INCREASED
     Dosage: 40 MG, HS
     Dates: start: 20090818

REACTIONS (5)
  - Malaise [Unknown]
  - Nausea [Recovered/Resolved]
  - Vomiting [Recovered/Resolved]
  - Dizziness [Recovered/Resolved]
  - Inadequate analgesia [Unknown]
